FAERS Safety Report 17622688 (Version 1)
Quarter: 2020Q2

REPORT INFORMATION
  Report Type: Spontaneous
  Country: NZ (occurrence: NZ)
  Receive Date: 20200403
  Receipt Date: 20200403
  Transmission Date: 20200713
  Serious: Yes (Other)
  Sender: FDA-Public Use
  Company Number: NZ-MYLANLABS-2020M1033777

PATIENT
  Age: 33 Year
  Sex: Female

DRUGS (1)
  1. CLOZARIL [Suspect]
     Active Substance: CLOZAPINE
     Indication: SCHIZOPHRENIA
     Dosage: UNK
     Route: 048
     Dates: start: 20200317, end: 20200325

REACTIONS (2)
  - Anxiety [Unknown]
  - Drug ineffective [Unknown]

NARRATIVE: CASE EVENT DATE: 202003
